FAERS Safety Report 25141723 (Version 1)
Quarter: 2025Q1

REPORT INFORMATION
  Report Type: Spontaneous
  Country: KW (occurrence: KW)
  Receive Date: 20250331
  Receipt Date: 20250331
  Transmission Date: 20250409
  Serious: Yes (Hospitalization, Other)
  Sender: APELLIS PHARMACEUTICALS
  Company Number: KW-BIOVITRUM-2025-KW-003579

PATIENT

DRUGS (2)
  1. PEGCETACOPLAN [Suspect]
     Active Substance: PEGCETACOPLAN
     Indication: Paroxysmal nocturnal haemoglobinuria
  2. PEGCETACOPLAN [Suspect]
     Active Substance: PEGCETACOPLAN
     Route: 058

REACTIONS (4)
  - Haemoglobinuria [Unknown]
  - Product dose omission issue [Unknown]
  - Product availability issue [Unknown]
  - Full blood count decreased [Unknown]

NARRATIVE: CASE EVENT DATE: 20250308
